FAERS Safety Report 12889458 (Version 3)
Quarter: 2017Q1

REPORT INFORMATION
  Report Type: Spontaneous
  Country: JP (occurrence: JP)
  Receive Date: 20161027
  Receipt Date: 20170118
  Transmission Date: 20170428
  Serious: Yes (Other)
  Sender: FDA-Public Use
  Company Number: JP-VIFOR (INTERNATIONAL) INC.-VIT-2016-06931

PATIENT
  Age: 3 Month
  Sex: Female
  Weight: .14 kg

DRUGS (1)
  1. MIRCERA [Suspect]
     Active Substance: METHOXY POLYETHYLENE GLYCOL-EPOETIN BETA
     Indication: CONGENITAL APLASTIC ANAEMIA
     Route: 065

REACTIONS (2)
  - Anaemia [Unknown]
  - Off label use [Unknown]
